FAERS Safety Report 24339655 (Version 1)
Quarter: 2024Q3

REPORT INFORMATION
  Report Type: Report from Study
  Country: ZA (occurrence: ZA)
  Receive Date: 20240919
  Receipt Date: 20240919
  Transmission Date: 20241017
  Serious: Yes (Other)
  Sender: BIOVITRUM
  Company Number: ZA-AstraZeneca-2024A212563

PATIENT
  Sex: Male

DRUGS (1)
  1. SYNAGIS [Suspect]
     Active Substance: PALIVIZUMAB
     Indication: Antiviral prophylaxis
     Dosage: ONCE IN 4 WEEK
     Route: 030
     Dates: start: 20240430

REACTIONS (4)
  - Vomiting [Not Recovered/Not Resolved]
  - Cough [Unknown]
  - Illness [Unknown]
  - Pyrexia [Unknown]
